FAERS Safety Report 8883272 (Version 5)
Quarter: 2015Q3

REPORT INFORMATION
  Report Type: Report from Study
  Country: CZ (occurrence: CZ)
  Receive Date: 20121102
  Receipt Date: 20150821
  Transmission Date: 20151125
  Serious: Yes (Disabling)
  Sender: FDA-Public Use
  Company Number: CZ-ROCHE-1151914

PATIENT
  Age: 50 Year
  Sex: Male
  Weight: 112 kg

DRUGS (7)
  1. MAXITROL [Concomitant]
     Active Substance: DEXAMETHASONE\NEOMYCIN SULFATE\POLYMYXIN B SULFATE
     Route: 047
     Dates: start: 20120307, end: 20120805
  2. METHYLPREDNISOLON [Concomitant]
     Active Substance: METHYLPREDNISOLONE
     Dosage: 16 TILL 4 / MG
     Route: 065
     Dates: start: 20140304
  3. ATROPIN [Concomitant]
     Active Substance: ATROPINE
     Route: 065
     Dates: start: 20121025, end: 20130315
  4. VEMURAFENIB [Suspect]
     Active Substance: VEMURAFENIB
     Indication: MALIGNANT MELANOMA
     Dosage: LAST DOSE PRIOR TO SAE ON 24/OCT/2012
     Route: 048
     Dates: start: 20120116
  5. EUTHYROX [Concomitant]
     Active Substance: LEVOTHYROXINE SODIUM
     Route: 065
     Dates: start: 201201, end: 201204
  6. PREDNISOLON [Concomitant]
     Active Substance: PREDNISOLONE
     Dosage: 20 TILL 60 / MG
     Route: 065
     Dates: start: 20130708, end: 20140303
  7. BETAMETHASONE. [Concomitant]
     Active Substance: BETAMETHASONE
     Dosage: 7 / MG/ML
     Route: 065
     Dates: start: 20140428, end: 20140428

REACTIONS (1)
  - Cataract [Not Recovered/Not Resolved]

NARRATIVE: CASE EVENT DATE: 201205
